FAERS Safety Report 5748543-2 (Version None)
Quarter: 2008Q2

REPORT INFORMATION
  Report Type: 
  Country: None (occurrence: None)
  Receive Date: 20080523
  Receipt Date: 20080513
  Transmission Date: 20081010
  Serious: Yes (Other)
  Sender: FDA-Public Use
  Company Number: FR-PFIZER INC-2008042059

PATIENT
  Sex: Male

DRUGS (6)
  1. NEURONTIN [Suspect]
     Route: 048
  2. ATHYMIL [Interacting]
     Indication: CACHEXIA
     Route: 048
     Dates: start: 20080331, end: 20080331
  3. URBANYL [Interacting]
     Route: 048
  4. SEROPRAM [Interacting]
     Route: 048
  5. OFLOXACIN [Concomitant]
  6. AMOXI-CLAVULANICO [Concomitant]

REACTIONS (2)
  - COMA [None]
  - DRUG INTERACTION [None]
